APPROVED DRUG PRODUCT: METRONIDAZOLE
Active Ingredient: METRONIDAZOLE
Strength: 500MG
Dosage Form/Route: TABLET;ORAL
Application: N018599 | Product #002
Applicant: WATSON LABORATORIES INC
Approved: Feb 13, 1984 | RLD: No | RS: No | Type: DISCN